FAERS Safety Report 5429016-3 (Version None)
Quarter: 2007Q3

REPORT INFORMATION
  Report Type: 
  Country: None (occurrence: None)
  Receive Date: 20070829
  Receipt Date: 20061017
  Transmission Date: 20080115
  Serious: No
  Sender: FDA-Public Use
  Company Number: A0623897A

PATIENT
  Sex: Female

DRUGS (2)
  1. MALARONE [Suspect]
     Indication: MALARIA
     Dosage: 1TAB PER DAY
     Route: 048
     Dates: start: 20061005
  2. NO CONCURRENT MEDICATION [Concomitant]

REACTIONS (3)
  - APHTHOUS STOMATITIS [None]
  - FLATULENCE [None]
  - SWOLLEN TONGUE [None]
